FAERS Safety Report 8449828-1 (Version None)
Quarter: 2012Q2

REPORT INFORMATION
  Report Type: 
  Country: None (occurrence: None)
  Receive Date: 20120620
  Receipt Date: 20120608
  Transmission Date: 20120825
  Serious: Yes (Hospitalization, Other)
  Sender: FDA-Public Use
  Company Number: US-ELI_LILLY_AND_COMPANY-US201206003824

PATIENT
  Age: 22 Year
  Sex: Female

DRUGS (4)
  1. PROZAC [Suspect]
     Indication: DEPRESSION
     Dosage: 1 DF, UNK
  2. PROZAC [Suspect]
     Dosage: 1 DF, QD
     Dates: start: 20120401
  3. ZYPREXA [Suspect]
     Indication: DEPRESSION
     Dosage: 1 DF, UNK
     Dates: start: 20120601
  4. MULTI-VITAMIN [Concomitant]

REACTIONS (3)
  - OFF LABEL USE [None]
  - DECREASED APPETITE [None]
  - WHITE BLOOD CELL COUNT DECREASED [None]
